FAERS Safety Report 12481015 (Version 1)
Quarter: 2016Q2

REPORT INFORMATION
  Report Type: Report from Study
  Country: US (occurrence: US)
  Receive Date: 20160620
  Receipt Date: 20160620
  Transmission Date: 20160815
  Serious: Yes (Other)
  Sender: FDA-Public Use
  Company Number: US-PFIZER INC-2016281063

PATIENT
  Age: 87 Year
  Sex: Female
  Weight: 45 kg

DRUGS (3)
  1. PHENYTOIN SODIUM. [Suspect]
     Active Substance: PHENYTOIN SODIUM
     Dosage: 15 MG/KG, (25 MG/MIN)
     Route: 041
  2. PHENYTOIN SODIUM. [Suspect]
     Active Substance: PHENYTOIN SODIUM
     Indication: SEIZURE
     Dosage: UNK
     Route: 042
  3. PHENYTOIN SODIUM. [Suspect]
     Active Substance: PHENYTOIN SODIUM
     Dosage: UNK, 20 MG/MIN

REACTIONS (3)
  - Electrocardiogram QRS complex prolonged [Unknown]
  - Nodal arrhythmia [Recovered/Resolved]
  - Hypotension [Recovered/Resolved]
